FAERS Safety Report 5518246-8 (Version None)
Quarter: 2007Q4

REPORT INFORMATION
  Report Type: 
  Country: None (occurrence: None)
  Receive Date: 20071115
  Receipt Date: 20071108
  Transmission Date: 20080405
  Serious: Yes (Other)
  Sender: FDA-Public Use
  Company Number: A0688504A

PATIENT
  Age: 67 Year
  Sex: Male
  Weight: 92.7 kg

DRUGS (21)
  1. AVODART [Suspect]
     Indication: BENIGN PROSTATIC HYPERPLASIA
     Dosage: .5MG PER DAY
     Route: 048
  2. HYTRIN [Suspect]
     Indication: DRUG USE FOR UNKNOWN INDICATION
     Route: 065
  3. VALIUM [Concomitant]
  4. FERRIC SULFATE [Concomitant]
  5. XOPENEX [Concomitant]
  6. ECOTRIN [Concomitant]
  7. SPIRIVA [Concomitant]
  8. ULTRACET [Concomitant]
  9. KLOR-CON [Concomitant]
  10. ALLOPURINOL [Concomitant]
  11. COMBIVENT [Concomitant]
  12. FLOVENT [Concomitant]
  13. SEREVENT [Concomitant]
  14. LUNESTA [Concomitant]
  15. PREDNISONE TAB [Concomitant]
  16. CLARITIN [Concomitant]
  17. LASIX [Concomitant]
  18. ACIPHEX [Concomitant]
  19. LANOXIN [Concomitant]
  20. CARDIZEM CD [Concomitant]
  21. PENTASA [Concomitant]

REACTIONS (2)
  - NEOPLASM MALIGNANT [None]
  - PROSTATIC SPECIFIC ANTIGEN INCREASED [None]
